FAERS Safety Report 9742817 (Version 1)
Quarter: 2013Q4

REPORT INFORMATION
  Report Type: Spontaneous
  Country: US (occurrence: US)
  Receive Date: 20131210
  Receipt Date: 20131210
  Transmission Date: 20140711
  Serious: No
  Sender: FDA-Public Use
  Company Number: US-BAYER-2013-149114

PATIENT
  Sex: Female

DRUGS (3)
  1. BAYER ASPIRIN REGIMEN ADULT LOW STRENGTH [Suspect]
     Indication: ISCHAEMIC HEART DISEASE PROPHYLAXIS
     Dosage: 1 DF, QD
     Route: 048
     Dates: start: 201212
  2. BAYER ASPIRIN REGIMEN ADULT LOW STRENGTH [Suspect]
     Indication: ISCHAEMIC HEART DISEASE PROPHYLAXIS
     Dosage: 1 DF, QOD
     Route: 048
     Dates: start: 201212
  3. ALEVE CAPLET [Suspect]
     Indication: SCIATICA
     Dosage: 1 DF, QD DAILY
     Route: 048
     Dates: start: 201206

REACTIONS (2)
  - Off label use [None]
  - Incorrect drug administration duration [None]
